FAERS Safety Report 21080046 (Version 10)
Quarter: 2023Q4

REPORT INFORMATION
  Report Type: Spontaneous
  Country: CA (occurrence: CA)
  Receive Date: 20220714
  Receipt Date: 20231210
  Transmission Date: 20240110
  Serious: Yes (Other)
  Sender: FDA-Public Use
  Company Number: CA-CELLTRION INC.-2022CA009825

PATIENT

DRUGS (12)
  1. INFLECTRA [Suspect]
     Active Substance: INFLIXIMAB-DYYB
     Indication: Crohn^s disease
     Dosage: 1 DF, WEEK 0 AND WEEK 2 AT HOSPITAL
     Route: 042
     Dates: start: 20220524, end: 202206
  2. INFLECTRA [Suspect]
     Active Substance: INFLIXIMAB-DYYB
     Dosage: 200 MG, WEEK 6, THEN EVERY 8 WEEKS
     Route: 042
     Dates: start: 20220704, end: 20221220
  3. INFLECTRA [Suspect]
     Active Substance: INFLIXIMAB-DYYB
     Dosage: 200 MG, WEEK 6, THEN EVERY 8 WEEKS
     Route: 042
     Dates: start: 20220704
  4. INFLECTRA [Suspect]
     Active Substance: INFLIXIMAB-DYYB
     Dosage: 200 MG, WEEK 6, THEN EVERY 8 WEEKS
     Route: 042
     Dates: start: 20220826
  5. INFLECTRA [Suspect]
     Active Substance: INFLIXIMAB-DYYB
     Dosage: 200 MG, EVERY 7 WEEKS
     Route: 042
     Dates: start: 20221220
  6. INFLECTRA [Suspect]
     Active Substance: INFLIXIMAB-DYYB
     Dosage: 200 MG, EVERY 7 WEEKS
     Route: 042
     Dates: start: 20230209
  7. INFLECTRA [Suspect]
     Active Substance: INFLIXIMAB-DYYB
     Dosage: 200 MG, EVERY 7 WEEKS
     Route: 042
     Dates: start: 20230328
  8. INFLECTRA [Suspect]
     Active Substance: INFLIXIMAB-DYYB
     Dosage: 200 MG, EVERY 7 WEEKS
     Route: 042
     Dates: start: 20230704
  9. INFLECTRA [Suspect]
     Active Substance: INFLIXIMAB-DYYB
     Dosage: 200 MG, EVERY 7 WEEKS
     Route: 042
     Dates: start: 20230822
  10. INFLECTRA [Suspect]
     Active Substance: INFLIXIMAB-DYYB
     Dosage: 200 MG, EVERY 7 WEEKS
     Route: 042
     Dates: start: 20231010
  11. INFLECTRA [Suspect]
     Active Substance: INFLIXIMAB-DYYB
     Dosage: 200 MG, AFTER 7 WEEKS AND 2 DAYS
     Route: 042
     Dates: start: 20231130
  12. IRON [Concomitant]
     Active Substance: IRON
     Dosage: UNK

REACTIONS (12)
  - Haemolysis [Unknown]
  - Rash pruritic [Not Recovered/Not Resolved]
  - Crying [Unknown]
  - Decreased appetite [Recovering/Resolving]
  - Skin lesion [Not Recovered/Not Resolved]
  - Bowel movement irregularity [Recovered/Resolved]
  - Eczema [Not Recovered/Not Resolved]
  - Cheilitis [Unknown]
  - Condition aggravated [Unknown]
  - Off label use [Unknown]
  - Off label use [Unknown]
  - Off label use [Unknown]

NARRATIVE: CASE EVENT DATE: 20220704
